FAERS Safety Report 15209671 (Version 1)
Quarter: 2018Q3

REPORT INFORMATION
  Report Type: Report from Study
  Country: US (occurrence: US)
  Receive Date: 20180727
  Receipt Date: 20180727
  Transmission Date: 20181010
  Serious: Yes (Hospitalization)
  Sender: FDA-Public Use
  Company Number: US-BIOVITRUM-2018BV000480

PATIENT
  Age: 52 Year
  Sex: Male

DRUGS (1)
  1. ALPROLIX [Suspect]
     Active Substance: EFTRENONACOG ALFA
     Indication: FACTOR IX DEFICIENCY
     Dosage: EVERY 10?12 DAYS
     Route: 065
     Dates: start: 201405

REACTIONS (4)
  - Drug dose omission [Unknown]
  - Intestinal obstruction [Unknown]
  - Haemorrhage [Unknown]
  - Sports injury [Unknown]

NARRATIVE: CASE EVENT DATE: 20180716
